FAERS Safety Report 7411619-8 (Version None)
Quarter: 2011Q2

REPORT INFORMATION
  Report Type: 
  Country: None (occurrence: None)
  Receive Date: 20110413
  Receipt Date: 20101004
  Transmission Date: 20111010
  Serious: No
  Sender: FDA-Public Use
  Company Number: US-BRISTOL-MYERS SQUIBB COMPANY-15315823

PATIENT
  Sex: Male

DRUGS (1)
  1. ERBITUX [Suspect]
     Dosage: THERAPY STARTED:3 OR 4 WEEKS AGO THERAPY ONGOING

REACTIONS (2)
  - CONJUNCTIVITIS [None]
  - SKIN REACTION [None]
